FAERS Safety Report 15116863 (Version 1)
Quarter: 2018Q3

REPORT INFORMATION
  Report Type: Spontaneous
  Country: SE (occurrence: SE)
  Receive Date: 20180706
  Receipt Date: 20180706
  Transmission Date: 20181010
  Serious: Yes (Other)
  Sender: FDA-Public Use
  Company Number: SE-TEVA-2018-SE-922624

PATIENT
  Age: 47 Year
  Sex: Male

DRUGS (5)
  1. ZOLPIDEM [Suspect]
     Active Substance: ZOLPIDEM\ZOLPIDEM TARTRATE
     Indication: SLEEP DISORDER
     Route: 048
     Dates: start: 20070322, end: 20100819
  2. ALCOHOL. [Suspect]
     Active Substance: ALCOHOL
     Indication: ALCOHOL USE
     Route: 048
     Dates: start: 20100819, end: 20100819
  3. XANOR [Concomitant]
     Active Substance: ALPRAZOLAM
     Indication: PRODUCT USED FOR UNKNOWN INDICATION
     Route: 048
  4. CYMBALTA [Concomitant]
     Active Substance: DULOXETINE HYDROCHLORIDE
     Indication: PRODUCT USED FOR UNKNOWN INDICATION
     Route: 048
  5. ZOLPIDEM [Suspect]
     Active Substance: ZOLPIDEM\ZOLPIDEM TARTRATE
     Indication: SLEEP DISORDER
     Dosage: ^TOOK 2 DOSE FORMS OF ZOLPIDEM 10 MG AROUND 18:00^
     Route: 048
     Dates: start: 20100819, end: 20100819

REACTIONS (5)
  - Road traffic accident [Unknown]
  - Impaired driving ability [Unknown]
  - Off label use [Unknown]
  - Intentional overdose [Unknown]
  - Amnesia [Unknown]

NARRATIVE: CASE EVENT DATE: 20100819
